FAERS Safety Report 13076260 (Version 4)
Quarter: 2017Q1

REPORT INFORMATION
  Report Type: Report from Study
  Country: US (occurrence: US)
  Receive Date: 20161230
  Receipt Date: 20170201
  Transmission Date: 20170428
  Serious: Yes (Other)
  Sender: FDA-Public Use
  Company Number: GXBR2016US003702

PATIENT
  Age: 45 Year
  Sex: Male

DRUGS (19)
  1. VISMODEGIB [Suspect]
     Active Substance: VISMODEGIB
     Dosage: 150 MG, QD
     Route: 048
     Dates: start: 20141110, end: 20150416
  2. BUPARLISIB [Suspect]
     Active Substance: BUPARLISIB HYDROCHLORIDE
     Indication: BASAL CELL CARCINOMA
     Dosage: 200 MG, QD
     Route: 048
     Dates: start: 20150730, end: 20150811
  3. NEURONTIN [Concomitant]
     Active Substance: GABAPENTIN
     Indication: MUSCULOSKELETAL PAIN
     Dosage: UNK DF, UNK
     Route: 048
     Dates: start: 20140505, end: 20161028
  4. MARINOL [Concomitant]
     Active Substance: DRONABINOL
     Indication: WEIGHT DECREASED
     Dosage: UNK DF, UNK
     Route: 048
     Dates: start: 20140702, end: 20161028
  5. CARBOPLATIN. [Suspect]
     Active Substance: CARBOPLATIN
     Indication: BASAL CELL CARCINOMA
     Dosage: UNK DF, QW
     Route: 042
     Dates: start: 20150428, end: 20150623
  6. ODOMZO [Suspect]
     Active Substance: SONIDEGIB
     Indication: BASAL CELL CARCINOMA
     Dosage: 80 MG, QD
     Route: 048
     Dates: start: 20150730, end: 20150811
  7. VISMODEGIB [Suspect]
     Active Substance: VISMODEGIB
     Indication: BASAL CELL CARCINOMA
     Dosage: 150 MG, QD
     Route: 048
     Dates: start: 20131116, end: 20140215
  8. CYMBALTA [Concomitant]
     Active Substance: DULOXETINE HYDROCHLORIDE
     Indication: MUSCULOSKELETAL PAIN
     Dosage: 20 MG, UNK
     Route: 048
     Dates: start: 20140211, end: 20161028
  9. FENTANYL. [Concomitant]
     Active Substance: FENTANYL
     Indication: MUSCULOSKELETAL PAIN
     Dosage: UNK DF, UNK
     Route: 050
     Dates: start: 20140117, end: 20161028
  10. CYMBALTA [Concomitant]
     Active Substance: DULOXETINE HYDROCHLORIDE
     Indication: NEURALGIA
     Dosage: 60 MG, UNK
     Route: 048
     Dates: start: 20140211, end: 20161028
  11. LIDOCAINE. [Concomitant]
     Active Substance: LIDOCAINE
     Indication: MUSCULOSKELETAL PAIN
     Dosage: UNK DF, UNK
     Route: 050
     Dates: start: 20141217, end: 20161028
  12. TYLENOL [Concomitant]
     Active Substance: ACETAMINOPHEN
     Indication: MUSCULOSKELETAL PAIN
     Dosage: UNK DF, UNK
     Route: 048
     Dates: start: 20161028
  13. NORCO [Concomitant]
     Active Substance: ACETAMINOPHEN\HYDROCODONE BITARTRATE
     Indication: MUSCULOSKELETAL PAIN
     Dosage: UNK DF, UNK
     Route: 048
     Dates: start: 20161028
  14. IBUPROFEN. [Concomitant]
     Active Substance: IBUPROFEN
     Indication: MUSCULOSKELETAL PAIN
     Dosage: UNK DF, UNK
     Route: 048
  15. FENTANYL. [Concomitant]
     Active Substance: FENTANYL
     Indication: NEURALGIA
  16. ALEVE [Concomitant]
     Active Substance: NAPROXEN SODIUM
     Indication: MUSCULOSKELETAL PAIN
     Dosage: UNK DF, UNK
     Route: 048
     Dates: end: 20161028
  17. ALEVE [Concomitant]
     Active Substance: NAPROXEN SODIUM
     Indication: NECK PAIN
  18. XANAX [Concomitant]
     Active Substance: ALPRAZOLAM
     Indication: ANXIETY
     Dosage: UNK DF, UNK
     Route: 048
     Dates: end: 20161028
  19. NEURONTIN [Concomitant]
     Active Substance: GABAPENTIN
     Indication: NEURALGIA

REACTIONS (1)
  - Depression [Not Recovered/Not Resolved]

NARRATIVE: CASE EVENT DATE: 20150730
